FAERS Safety Report 21567745 (Version 1)
Quarter: 2022Q4

REPORT INFORMATION
  Report Type: 
  Country: US (occurrence: US)
  Receive Date: 20221108
  Receipt Date: 20221108
  Transmission Date: 20230113
  Serious: Yes (Other)
  Sender: FDA-Public Use
  Company Number: US-Fresenius Medical Care Renal Therapies Group-FMC-2209-001475

PATIENT
  Age: 73 Year
  Sex: Male
  Weight: 77 kg

DRUGS (3)
  1. DELFLEX WITH DEXTROSE 1.5% LOW MAGNESIUM LOW CALCIUM [Suspect]
     Active Substance: CALCIUM CHLORIDE\DEXTROSE\MAGNESIUM CHLORIDE\SODIUM CHLORIDE\SODIUM LACTATE
     Indication: End stage renal disease
     Dosage: EXCHANGES = 6, FILL VOLUME = 2900 ML, DWELL TIME = 1.0 HOUR 20 MINUTES, LAST FILL = 100 ML, DAYTIME
     Route: 033
  2. DELFLEX WITH DEXTROSE 2.5% LOW MAGNESIUM LOW CALCIUM [Suspect]
     Active Substance: CALCIUM CHLORIDE\DEXTROSE\MAGNESIUM CHLORIDE\SODIUM CHLORIDE\SODIUM LACTATE
     Indication: End stage renal disease
     Dosage: EXCHANGES = 6, FILL VOLUME = 2900 ML, DWELL TIME = 1.0 HOUR 20 MINUTES, LAST FILL = 100 ML, DAYTIME
     Route: 033
  3. DELFLEX WITH DEXTROSE 4.25% LOW MAGNESIUM LOW CALCIUM [Suspect]
     Active Substance: CALCIUM CHLORIDE\DEXTROSE\MAGNESIUM CHLORIDE\SODIUM CHLORIDE\SODIUM LACTATE
     Indication: End stage renal disease
     Dosage: EXCHANGES = 6, FILL VOLUME = 2900 ML, DWELL TIME = 1.0 HOUR 20 MINUTES, LAST FILL = 100 ML, DAYTIME
     Route: 033

REACTIONS (1)
  - Peritonitis [Recovered/Resolved]
